FAERS Safety Report 7048414-8 (Version None)
Quarter: 2010Q4

REPORT INFORMATION
  Report Type: 
  Country: None (occurrence: None)
  Receive Date: 20101015
  Receipt Date: 20101015
  Transmission Date: 20110411
  Serious: Yes (Other)
  Sender: FDA-Public Use
  Company Number: None

PATIENT
  Sex: Female
  Weight: 60 kg

DRUGS (1)
  1. INVANZ [Suspect]
     Indication: INFECTION
     Dosage: 500MG ONE DOSE IM
     Route: 030
     Dates: start: 20101004

REACTIONS (3)
  - CIRCUMSTANCE OR INFORMATION CAPABLE OF LEADING TO MEDICATION ERROR [None]
  - DRUG LABEL CONFUSION [None]
  - MEDICATION ERROR [None]
